FAERS Safety Report 8947745 (Version 1)
Quarter: 2012Q4

REPORT INFORMATION
  Report Type: 
  Country: US (occurrence: US)
  Receive Date: 20121204
  Receipt Date: 20121204
  Transmission Date: 20130627
  Serious: Yes (Other)
  Sender: FDA-Public Use
  Company Number: US-PFIZER INC-2012297014

PATIENT
  Age: 83 Year
  Sex: Male
  Weight: 68.03 kg

DRUGS (6)
  1. PREPARATION H CREAM MAX STRENGTH [Suspect]
     Indication: HEMORRHOIDS
     Dosage: UNK, as needed
     Dates: start: 201211
  2. PREPARATION H OINTMENT [Suspect]
     Indication: HEMORRHOIDS
     Dosage: UNK, five to six times a day
     Dates: start: 201211
  3. PREPARATION H OINTMENT [Suspect]
     Indication: ANORECTAL DISORDER
  4. PREPARATION H OINTMENT [Suspect]
     Indication: RASH
  5. PREPARATION H CREAM [Suspect]
     Indication: ANORECTAL DISORDER
     Dosage: UNK, five to six times a day
     Dates: start: 201211
  6. PREPARATION H CREAM [Suspect]
     Indication: RASH

REACTIONS (6)
  - Haemorrhage [Unknown]
  - Drug ineffective [Unknown]
  - Diarrhoea [Unknown]
  - Irritability [Unknown]
  - Pain [Unknown]
  - Anorectal discomfort [None]
